FAERS Safety Report 9431521 (Version 1)
Quarter: 2013Q3

REPORT INFORMATION
  Report Type: Report from Study
  Country: JP (occurrence: JP)
  Receive Date: 20130730
  Receipt Date: 20130730
  Transmission Date: 20140515
  Serious: Yes (Hospitalization)
  Sender: FDA-Public Use
  Company Number: JP-MYLANLABS-2012S1012959

PATIENT
  Age: 39 Year
  Sex: Male

DRUGS (3)
  1. CARBAMAZEPINE [Suspect]
     Indication: MENTAL DISORDER
     Route: 065
  2. PREDNISOLONE [Suspect]
     Indication: DRUG REACTION WITH EOSINOPHILIA AND SYSTEMIC SYMPTOMS
     Dosage: 40 MG/DAY; GRADUALLY TAPERED OVER 2M
     Route: 048
  3. PREDNISOLONE [Suspect]
     Indication: DRUG REACTION WITH EOSINOPHILIA AND SYSTEMIC SYMPTOMS
     Dosage: 10 MG/DAY
     Route: 048

REACTIONS (6)
  - Drug reaction with eosinophilia and systemic symptoms [Unknown]
  - Drug reaction with eosinophilia and systemic symptoms [Unknown]
  - Infection reactivation [Recovered/Resolved]
  - Herpes zoster [Recovered/Resolved]
  - Human herpesvirus 6 infection [Unknown]
  - Cytomegalovirus test positive [Unknown]
